FAERS Safety Report 7930932-9 (Version None)
Quarter: 2011Q4

REPORT INFORMATION
  Report Type: 
  Country: None (occurrence: None)
  Receive Date: 20111121
  Receipt Date: 20111116
  Transmission Date: 20120403
  Serious: Yes (Hospitalization)
  Sender: FDA-Public Use
  Company Number: MY-B.I. PHARMACEUTICALS,INC./RIDGEFIELD-2011-CS-00628MD

PATIENT
  Age: 53 Year
  Sex: Female

DRUGS (7)
  1. FUSIDIC ACID [Concomitant]
     Route: 048
  2. TRAMADOL HCL [Concomitant]
     Dosage: 50MG PRN
     Route: 048
  3. PRADAXA [Suspect]
     Indication: THROMBOSIS PROPHYLAXIS
     Dosage: 220 MG
     Route: 048
     Dates: start: 20110328
  4. RANITIDINE [Concomitant]
     Dosage: 300 MG
     Route: 048
  5. VANCOMYCIN [Suspect]
     Route: 042
     Dates: start: 20110325, end: 20110412
  6. CELEBREX [Suspect]
  7. CLOXACILLIN SODIUM [Concomitant]
     Dosage: 2000 MG
     Route: 048
     Dates: end: 20110412

REACTIONS (2)
  - HEPATITIS [None]
  - DRUG RASH WITH EOSINOPHILIA AND SYSTEMIC SYMPTOMS [None]
